FAERS Safety Report 9056383 (Version 1)
Quarter: 2013Q1

REPORT INFORMATION
  Report Type: Spontaneous
  Country: US (occurrence: US)
  Receive Date: 20130204
  Receipt Date: 20130204
  Transmission Date: 20140127
  Serious: Yes (Other)
  Sender: FDA-Public Use
  Company Number: PHEH2013US002490

PATIENT
  Age: 66 Year
  Sex: Male

DRUGS (1)
  1. TEKTURNA HCT [Suspect]
     Dosage: 1 DF (300 MG ALIS AND 30 MG HCTZ), UNK

REACTIONS (1)
  - Hearing impaired [Unknown]
